FAERS Safety Report 21900870 (Version 3)
Quarter: 2023Q1

REPORT INFORMATION
  Report Type: Spontaneous
  Country: JP (occurrence: JP)
  Receive Date: 20230123
  Receipt Date: 20230306
  Transmission Date: 20230417
  Serious: Yes (Other)
  Sender: FDA-Public Use
  Company Number: JP-GSKJP-JP2023JPN003097

PATIENT

DRUGS (1)
  1. BOTULINUM TOXIN TYPE A [Suspect]
     Active Substance: BOTULINUM TOXIN TYPE A
     Indication: Hypertonic bladder
     Dosage: UNK UNK, SINGLE
     Route: 043

REACTIONS (3)
  - Condition aggravated [Unknown]
  - Urinary retention [Unknown]
  - Contraindicated product administered [Unknown]
